FAERS Safety Report 8179922-4 (Version None)
Quarter: 2012Q1

REPORT INFORMATION
  Report Type: 
  Country: None (occurrence: None)
  Receive Date: 20120302
  Receipt Date: 20120228
  Transmission Date: 20120608
  Serious: Yes (Death, Other)
  Sender: FDA-Public Use
  Company Number: US-PFIZER INC-2011152709

PATIENT
  Sex: Male

DRUGS (1)
  1. CHANTIX [Suspect]
     Indication: SMOKING CESSATION THERAPY
     Dosage: ONE TABLET 5MG, ONE TABLET 5MG TWICE A DAY, ONE TABLET 1MG TWICE A DAY
     Route: 048
     Dates: start: 20090301, end: 20100101

REACTIONS (1)
  - COMPLETED SUICIDE [None]
